FAERS Safety Report 10265794 (Version 1)
Quarter: 2014Q2

REPORT INFORMATION
  Report Type: Spontaneous
  Country: US (occurrence: US)
  Receive Date: 20140627
  Receipt Date: 20140627
  Transmission Date: 20141212
  Serious: Yes (Other)
  Sender: FDA-Public Use
  Company Number: US-JNJFOC-20140616865

PATIENT
  Sex: Male
  Weight: 76.2 kg

DRUGS (23)
  1. PREZISTA [Suspect]
     Indication: HIV INFECTION
     Route: 048
     Dates: start: 20100805
  2. NORVIR [Suspect]
     Indication: HIV INFECTION
     Route: 048
     Dates: start: 20100805
  3. DIAZEPAM [Suspect]
     Indication: PRODUCT USED FOR UNKNOWN INDICATION
     Route: 048
     Dates: start: 20100805
  4. ACYCLOVIR [Concomitant]
     Indication: HERPES SIMPLEX
     Route: 048
  5. ISENTRESS [Concomitant]
     Indication: HIV INFECTION
     Route: 048
  6. BECONASE [Concomitant]
     Indication: SINUSITIS
     Route: 045
  7. DESONIDE [Concomitant]
     Indication: SKIN DISORDER
     Dosage: TWICE DAILY EVERY OTHER DAY
     Route: 061
  8. ELIDEL [Concomitant]
     Indication: SKIN DISORDER
     Dosage: TWICE DAILY EVERY OTHER DAY
     Route: 061
  9. EMTRIVA [Concomitant]
     Indication: HIV INFECTION
     Dosage: TWICE DAILY EVERY OTHER DAY
     Route: 048
  10. ERGOCALCIFEROL [Concomitant]
     Indication: VITAMIN D DEFICIENCY
     Dosage: 50 000 UNITS
     Route: 048
     Dates: start: 201012, end: 201311
  11. ATORVASTATIN [Concomitant]
     Indication: BLOOD CHOLESTEROL ABNORMAL
     Route: 048
  12. KETOCONAZOLE 2 % [Concomitant]
     Indication: SKIN DISORDER
     Route: 061
  13. PATANOL [Concomitant]
     Indication: MULTIPLE ALLERGIES
     Dosage: 2 DROPS
     Route: 031
  14. PATANOL [Concomitant]
     Indication: RHINITIS
     Dosage: 2 DROPS
     Route: 031
  15. FINASTERIDE [Concomitant]
     Indication: PROSTATOMEGALY
     Dosage: 2 DROPS
     Route: 048
  16. CITRACAL [Concomitant]
     Indication: CALCIUM DEFICIENCY
     Dosage: 2 DROPS
     Route: 048
  17. CITRACAL [Concomitant]
     Indication: VITAMIN D DEFICIENCY
     Dosage: 2 DROPS
     Route: 048
  18. FISH OIL OMEGA 3 [Concomitant]
     Dosage: 2 DROPS
     Route: 048
  19. GARLIC [Concomitant]
     Dosage: 2 DROPS
     Route: 048
  20. STREPTASE [Concomitant]
     Dosage: 1 TEASPOON
     Route: 048
  21. REFRESH TEARS LUBRICANT [Concomitant]
     Indication: DRY EYE
     Dosage: 1 TEASPOON
     Route: 031
  22. VITAMIN B12 [Concomitant]
     Indication: VITAMIN B12 DEFICIENCY
     Dosage: 50 000 UNITS
     Route: 048
  23. VITAMIN C [Concomitant]
     Indication: HEPATITIS A
     Dosage: 50 000 UNITS
     Route: 048

REACTIONS (4)
  - Nephropathy [Not Recovered/Not Resolved]
  - Blood triglycerides increased [Not Recovered/Not Resolved]
  - Diabetes mellitus [Not Recovered/Not Resolved]
  - Somnolence [Not Recovered/Not Resolved]
